FAERS Safety Report 4817960-7 (Version None)
Quarter: 2005Q4

REPORT INFORMATION
  Report Type: 
  Country: None (occurrence: None)
  Receive Date: 20051101
  Receipt Date: 20051101
  Transmission Date: 20060501
  Serious: Yes (Hospitalization)
  Sender: FDA-Public Use
  Company Number: None

PATIENT
  Age: 79 Year
  Sex: Male
  Weight: 86.1834 kg

DRUGS (12)
  1. NPH INSULIN [Suspect]
     Indication: DIABETES MELLITUS
     Dosage: 38 UNITS AM + 30 UNITS HS
     Dates: start: 20050919, end: 20050919
  2. ASPIRIN TAB,EC [Concomitant]
  3. CLONIDINE HCL [Concomitant]
  4. DEXTROSE 5% NACL [Concomitant]
  5. INSULIN REG HUMAN (NOVOLIN R) [Concomitant]
  6. LISINOPRIL [Concomitant]
  7. METOPROLOL [Concomitant]
  8. OCUVITE TAB [Concomitant]
  9. PHENYTOIN [Concomitant]
  10. SIMVASTATIN [Concomitant]
  11. SODIUM CHLORIDE [Concomitant]
  12. VALPROIC ACID [Concomitant]

REACTIONS (2)
  - HYPOGLYCAEMIA [None]
  - LOSS OF CONSCIOUSNESS [None]
